FAERS Safety Report 18307650 (Version 1)
Quarter: 2020Q3

REPORT INFORMATION
  Report Type: Report from Study
  Country: RO (occurrence: RO)
  Receive Date: 20200924
  Receipt Date: 20200924
  Transmission Date: 20201103
  Serious: Yes (Hospitalization)
  Sender: FDA-Public Use
  Company Number: NVSC2020RO258563

PATIENT
  Age: 69 Year
  Sex: Male

DRUGS (1)
  1. COSENTYX [Suspect]
     Active Substance: SECUKINUMAB
     Indication: PSORIASIS
     Dosage: 150 MG, QMO
     Route: 058
     Dates: end: 20200910

REACTIONS (3)
  - Red blood cell count increased [Unknown]
  - Haemoglobin decreased [Unknown]
  - Nodule [Unknown]

NARRATIVE: CASE EVENT DATE: 202009
